FAERS Safety Report 7849741 (Version 6)
Quarter: 2013Q4

REPORT INFORMATION
  Report Type: Spontaneous
  Country: US (occurrence: US)
  Receive Date: 20110310
  Receipt Date: 20131223
  Transmission Date: 20140711
  Serious: Yes (Hospitalization, Other)
  Sender: FDA-Public Use
  Company Number: US-BAYER-2011-021167

PATIENT
  Age: 25 Year
  Sex: Female
  Weight: 49.89 kg

DRUGS (12)
  1. YASMIN [Suspect]
     Indication: ENDOMETRIOSIS
     Dosage: UNK
     Dates: start: 2004, end: 2006
  2. YASMIN [Suspect]
     Indication: DYSMENORRHOEA
  3. YASMIN [Suspect]
     Indication: PREMENSTRUAL DYSPHORIC DISORDER
  4. YAZ [Suspect]
     Indication: ENDOMETRIOSIS
     Dosage: UNK
     Dates: start: 2006, end: 2008
  5. YAZ [Suspect]
     Indication: DYSMENORRHOEA
  6. YAZ [Suspect]
     Indication: PREMENSTRUAL DYSPHORIC DISORDER
  7. IBUPROFEN [Concomitant]
     Indication: PAIN
  8. ZOFRAN [Concomitant]
  9. MORPHINE [Concomitant]
  10. CIPRO [Concomitant]
  11. FLAGYL [Concomitant]
  12. REGLAN [Concomitant]

REACTIONS (10)
  - Cholecystitis chronic [Unknown]
  - Gastrointestinal disorder [Unknown]
  - Loss of consciousness [None]
  - Pain [Unknown]
  - Vomiting [Unknown]
  - Diarrhoea [Unknown]
  - Emotional distress [None]
  - Depression [None]
  - Fear of death [None]
  - Nervousness [None]
